FAERS Safety Report 16278601 (Version 1)
Quarter: 2019Q2

REPORT INFORMATION
  Report Type: Spontaneous
  Country: IT (occurrence: IT)
  Receive Date: 20190506
  Receipt Date: 20190506
  Transmission Date: 20190711
  Serious: Yes (Other)
  Sender: FDA-Public Use
  Company Number: PHHY2019IT099043

PATIENT
  Age: 79 Year
  Sex: Female

DRUGS (2)
  1. METHOTREXATE. [Suspect]
     Active Substance: METHOTREXATE
     Indication: RHEUMATOID ARTHRITIS
     Dosage: 15 MG, QW
     Route: 065
  2. METHOTREXATE. [Suspect]
     Active Substance: METHOTREXATE
     Dosage: 15 MG, QD
     Route: 065

REACTIONS (15)
  - Leukopenia [Recovering/Resolving]
  - Cerebral haematoma [Unknown]
  - Toxicity to various agents [Unknown]
  - Stomatitis [Unknown]
  - Asthenia [Unknown]
  - Genital erythema [Recovering/Resolving]
  - Oral mucosal erythema [Recovering/Resolving]
  - Agranulocytosis [Recovering/Resolving]
  - Odynophagia [Unknown]
  - Pyrexia [Unknown]
  - Thrombocytopenia [Recovering/Resolving]
  - Anaemia [Recovering/Resolving]
  - Skin erosion [Unknown]
  - Lip erosion [Recovering/Resolving]
  - Subarachnoid haemorrhage [Unknown]
